FAERS Safety Report 9738155 (Version 2)
Quarter: 2013Q4

REPORT INFORMATION
  Report Type: Spontaneous
  Country: US (occurrence: US)
  Receive Date: 20131208
  Receipt Date: 20131208
  Transmission Date: 20140711
  Serious: No
  Sender: FDA-Public Use
  Company Number: US-SA-RENA-1002093

PATIENT
  Sex: Male

DRUGS (1)
  1. RENVELA [Suspect]
     Indication: PRODUCT USED FOR UNKNOWN INDICATION
     Dosage: 17.6 G, QD (06 TABLETS TID WITH MEALS, 02 TABLETS WITH SNACKS)
     Route: 048

REACTIONS (2)
  - Constipation [Recovered/Resolved]
  - Overdose [Unknown]
